FAERS Safety Report 24576660 (Version 1)
Quarter: 2024Q4

REPORT INFORMATION
  Report Type: Spontaneous
  Country: CN (occurrence: CN)
  Receive Date: 20241104
  Receipt Date: 20241104
  Transmission Date: 20250115
  Serious: Yes (Life-Threatening, Hospitalization, Other)
  Sender: BAYER HEALTHCARE PHARMACEUTICALS INC.
  Company Number: CN-BAYER-2024A156230

PATIENT
  Age: 78 Year
  Sex: Female
  Weight: 51 kg

DRUGS (2)
  1. GLUCOBAY [Interacting]
     Active Substance: ACARBOSE
     Indication: Diabetes mellitus
     Dosage: 100 MG, TID
     Route: 048
     Dates: start: 20220801, end: 20241002
  2. GLICLAZIDE [Interacting]
     Active Substance: GLICLAZIDE
     Indication: Diabetes mellitus
     Dosage: 90 MG, QD
     Route: 048
     Dates: start: 20220801, end: 20241002

REACTIONS (6)
  - Hypoglycaemic coma [Recovering/Resolving]
  - Altered state of consciousness [Recovered/Resolved]
  - Incoherent [Recovered/Resolved]
  - Dysarthria [None]
  - Syncope [Recovered/Resolved]
  - Asthenia [None]

NARRATIVE: CASE EVENT DATE: 20241002
